FAERS Safety Report 5877968-X (Version None)
Quarter: 2008Q3

REPORT INFORMATION
  Report Type: 
  Country: None (occurrence: None)
  Receive Date: 20080911
  Receipt Date: 20080909
  Transmission Date: 20090109
  Serious: Yes (Other)
  Sender: FDA-Public Use
  Company Number: JP-ASTRAZENECA-2008AP06522

PATIENT
  Age: 84 Year
  Sex: Female
  Weight: 57 kg

DRUGS (6)
  1. XYLOCAINE [Suspect]
     Indication: INFILTRATION ANAESTHESIA
     Route: 058
     Dates: start: 20080821, end: 20080821
  2. WYSTAL [Suspect]
     Indication: POST PROCEDURAL INFECTION
     Route: 041
     Dates: start: 20080821, end: 20080821
  3. LACTEC [Concomitant]
     Indication: FLUID REPLACEMENT
     Route: 042
     Dates: start: 20080821, end: 20080821
  4. SOLU-MEDROL [Concomitant]
     Indication: PROPHYLAXIS
     Route: 042
     Dates: start: 20080821, end: 20080821
  5. HYDROCORTISONE 10MG TAB [Concomitant]
     Indication: SHOCK
     Route: 042
     Dates: start: 20080821, end: 20080821
  6. EFFORTIL [Concomitant]
     Indication: BLOOD PRESSURE DECREASED
     Route: 042
     Dates: start: 20080821, end: 20080821

REACTIONS (1)
  - ANAPHYLACTIC SHOCK [None]
